FAERS Safety Report 7980744-5 (Version None)
Quarter: 2011Q4

REPORT INFORMATION
  Report Type: 
  Country: None (occurrence: None)
  Receive Date: 20111214
  Receipt Date: 20111205
  Transmission Date: 20120403
  Serious: Yes (Other)
  Sender: FDA-Public Use
  Company Number: AU-BAXTER-2011BH038536

PATIENT
  Sex: Male

DRUGS (1)
  1. SUPRANE [Suspect]
     Indication: INDUCTION OF ANAESTHESIA
     Route: 055

REACTIONS (2)
  - CARDIAC ARREST [None]
  - LARYNGOSPASM [None]
